FAERS Safety Report 18471454 (Version 1)
Quarter: 2020Q4

REPORT INFORMATION
  Report Type: Spontaneous
  Country: US (occurrence: US)
  Receive Date: 20201105
  Receipt Date: 20201105
  Transmission Date: 20210114
  Serious: Yes (Disabling, Other)
  Sender: FDA-Public Use
  Company Number: US-PURDUE-USA-2020-0161788

PATIENT
  Sex: Male

DRUGS (8)
  1. VICODIN [Suspect]
     Active Substance: ACETAMINOPHEN\HYDROCODONE BITARTRATE
     Indication: PRODUCT USED FOR UNKNOWN INDICATION
     Dosage: UNK
     Route: 065
  2. OXYCONTIN [Suspect]
     Active Substance: OXYCODONE HYDROCHLORIDE
     Indication: SCIATICA
     Dosage: UNK
     Route: 048
     Dates: start: 201206
  3. OXYIR [Suspect]
     Active Substance: OXYCODONE HYDROCHLORIDE
     Indication: SCIATICA
     Dosage: UNK
     Route: 065
     Dates: start: 201206
  4. OXYCODONE/ ACETAMINOPHEN TABLETS [Suspect]
     Active Substance: ACETAMINOPHEN\OXYCODONE HYDROCHLORIDE
     Indication: SCIATICA
     Dosage: UNK
     Route: 048
     Dates: start: 201206
  5. OXYCODONE HCL CR TABLETS (SIMILAR TO NDA 22-272) [Suspect]
     Active Substance: OXYCODONE HYDROCHLORIDE
     Indication: SCIATICA
     Dosage: UNK
     Route: 048
     Dates: start: 201206
  6. TRAMADOL. [Suspect]
     Active Substance: TRAMADOL
     Indication: PRODUCT USED FOR UNKNOWN INDICATION
     Dosage: UNK
     Route: 065
  7. HYDROCODONE BITARTRATE AND ACETAMINOPHEN [Suspect]
     Active Substance: ACETAMINOPHEN\HYDROCODONE BITARTRATE
     Indication: PRODUCT USED FOR UNKNOWN INDICATION
     Dosage: UNK
     Route: 048
  8. OXYCODONE HYDROCHLORIDE. [Suspect]
     Active Substance: OXYCODONE HYDROCHLORIDE
     Indication: SCIATICA
     Dosage: UNK
     Route: 048
     Dates: start: 201206

REACTIONS (10)
  - Emotional distress [Recovered/Resolved]
  - Depression [Recovered/Resolved]
  - Drug dependence [Recovered/Resolved]
  - Anxiety [Recovered/Resolved]
  - Overdose [Recovered/Resolved]
  - Self esteem decreased [Recovered/Resolved]
  - Mental disorder [Recovered/Resolved]
  - Cognitive disorder [Unknown]
  - Behaviour disorder [Unknown]
  - Stress [Unknown]

NARRATIVE: CASE EVENT DATE: 201206
